FAERS Safety Report 15959160 (Version 2)
Quarter: 2019Q1

REPORT INFORMATION
  Report Type: Report from Study
  Country: KR (occurrence: KR)
  Receive Date: 20190214
  Receipt Date: 20190225
  Transmission Date: 20190417
  Serious: Yes (Other)
  Sender: FDA-Public Use
  Company Number: KR-ROCHE-2265018

PATIENT
  Age: 64 Year
  Sex: Male
  Weight: 70.9 kg

DRUGS (7)
  1. HM95573 (RAF KINASE INHIBITOR) [Suspect]
     Active Substance: INVESTIGATIONAL PRODUCT
     Indication: COLON CANCER
     Route: 048
     Dates: start: 20181220, end: 20190201
  2. SYNTHROID [Concomitant]
     Active Substance: LEVOTHYROXINE SODIUM
     Indication: HYPOTHYROIDISM
     Route: 048
  3. FEBURIC [Concomitant]
     Active Substance: FEBUXOSTAT
     Indication: GOUT
     Route: 048
  4. LACTICARE ZEMAGIS [Concomitant]
     Indication: RASH
     Route: 061
     Dates: start: 20190104
  5. DOXYCYCLINE. [Concomitant]
     Active Substance: DOXYCYCLINE
     Indication: RASH
     Route: 048
  6. COBIMETINIB. [Suspect]
     Active Substance: COBIMETINIB
     Indication: COLON CANCER
     Route: 048
     Dates: start: 20181220, end: 20190201
  7. LOPMIN [Concomitant]
     Indication: DIARRHOEA
     Route: 048
     Dates: start: 20190104

REACTIONS (1)
  - Ascites [Recovering/Resolving]

NARRATIVE: CASE EVENT DATE: 20190201
